FAERS Safety Report 5235189-8 (Version None)
Quarter: 2007Q1

REPORT INFORMATION
  Report Type: 
  Country: None (occurrence: None)
  Receive Date: 20070212
  Receipt Date: 20070201
  Transmission Date: 20070707
  Serious: Yes (Disabling)
  Sender: FDA-Public Use
  Company Number: CA-BAYER-200710775GDS

PATIENT
  Age: 80 Year

DRUGS (1)
  1. NEXAVAR [Suspect]
     Indication: METASTATIC RENAL CELL CARCINOMA
     Route: 048
     Dates: start: 20070109

REACTIONS (2)
  - SKIN REACTION [None]
  - TOOTH MALFORMATION [None]
